FAERS Safety Report 5659676-3 (Version None)
Quarter: 2008Q1

REPORT INFORMATION
  Report Type: 
  Country: None (occurrence: None)
  Receive Date: 20080310
  Receipt Date: 20080310
  Transmission Date: 20080703
  Serious: No
  Sender: FDA-Public Use
  Company Number: None

PATIENT
  Age: 70 Year
  Sex: Female
  Weight: 89.8122 kg

DRUGS (2)
  1. LOPRESSOR [Suspect]
     Indication: ANGINA PECTORIS
     Dosage: 50MG BID PO
     Route: 048
     Dates: start: 20060101
  2. LOPRESSOR [Suspect]
     Indication: HYPERTENSION
     Dosage: 50MG BID PO
     Route: 048
     Dates: start: 20060101

REACTIONS (1)
  - NAUSEA [None]
